FAERS Safety Report 5493074-0 (Version None)
Quarter: 2007Q4

REPORT INFORMATION
  Report Type: 
  Country: None (occurrence: None)
  Receive Date: 20071019
  Receipt Date: 20071010
  Transmission Date: 20080405
  Serious: Yes (Other)
  Sender: FDA-Public Use
  Company Number: 17643

PATIENT

DRUGS (4)
  1. BLEOMYCIN [Suspect]
     Indication: HODGKIN'S DISEASE
  2. DACARBAZINE [Suspect]
     Indication: HODGKIN'S DISEASE
  3. VINBLASTINE SULFATE [Suspect]
     Indication: HODGKIN'S DISEASE
  4. DOXORUBICIN HCL [Suspect]
     Indication: HODGKIN'S DISEASE

REACTIONS (1)
  - FEBRILE NEUTROPENIA [None]
